FAERS Safety Report 7809079-8 (Version None)
Quarter: 2011Q4

REPORT INFORMATION
  Report Type: 
  Country: None (occurrence: None)
  Receive Date: 20111012
  Receipt Date: 20111004
  Transmission Date: 20120403
  Serious: Yes (Other)
  Sender: FDA-Public Use
  Company Number: US-JNJFOC-20111002202

PATIENT
  Sex: Female
  Weight: 58.97 kg

DRUGS (1)
  1. LEVAQUIN [Suspect]
     Indication: URINARY TRACT INFECTION
     Route: 048
     Dates: start: 20110926, end: 20110928

REACTIONS (8)
  - JOINT SWELLING [None]
  - ARTHRALGIA [None]
  - RASH GENERALISED [None]
  - MUSCULAR WEAKNESS [None]
  - FEELING HOT [None]
  - PARAESTHESIA [None]
  - EMOTIONAL DISTRESS [None]
  - ARTHROPATHY [None]
